FAERS Safety Report 24168874 (Version 1)
Quarter: 2024Q3

REPORT INFORMATION
  Report Type: Spontaneous
  Country: US (occurrence: US)
  Receive Date: 20240802
  Receipt Date: 20240802
  Transmission Date: 20241017
  Serious: Yes (Death, Other)
  Sender: BRISTOL MYERS SQUIBB
  Company Number: US-BRISTOL-MYERS SQUIBB COMPANY-2024-121948

PATIENT
  Age: 73 Year
  Sex: Female
  Weight: 73.4 kg

DRUGS (1)
  1. REVLIMID [Suspect]
     Active Substance: LENALIDOMIDE
     Indication: Plasma cell myeloma
     Dosage: DOSE : 20 MG;     FREQ : ONCE DAILY FOR 14 DAYS AND 7 DAYS OFF EVERY CHEMOTHERAPY CYCLE
     Route: 048
     Dates: start: 20240531

REACTIONS (2)
  - Death [Fatal]
  - Off label use [Unknown]
